FAERS Safety Report 4521873-8 (Version None)
Quarter: 2004Q4

REPORT INFORMATION
  Report Type: 
  Country: None (occurrence: None)
  Receive Date: 20041209
  Receipt Date: 20041025
  Transmission Date: 20050328
  Serious: Yes (Hospitalization, Other)
  Sender: FDA-Public Use
  Company Number: PHFR2004GB03974

PATIENT
  Age: 53 Year
  Sex: Male

DRUGS (1)
  1. CLOZARIL [Suspect]
     Indication: SCHIZOPHRENIA
     Dosage: 350MG/DAY
     Route: 048
     Dates: start: 20001206

REACTIONS (6)
  - FULL BLOOD COUNT DECREASED [None]
  - NAUSEA [None]
  - OESOPHAGEAL CARCINOMA [None]
  - REGURGITATION OF FOOD [None]
  - THROAT CANCER [None]
  - VOMITING [None]
